FAERS Safety Report 20200512 (Version 1)
Quarter: 2021Q4

REPORT INFORMATION
  Report Type: Report from Study
  Country: CO (occurrence: CO)
  Receive Date: 20211217
  Receipt Date: 20211217
  Transmission Date: 20220303
  Serious: Yes (Other)
  Sender: FDA-Public Use
  Company Number: CO-ABBVIE-21K-036-4202755-00

PATIENT
  Sex: Male
  Weight: 110 kg

DRUGS (2)
  1. HUMIRA [Suspect]
     Active Substance: ADALIMUMAB
     Indication: Colitis ulcerative
     Route: 058
     Dates: end: 20211127
  2. HUMIRA [Suspect]
     Active Substance: ADALIMUMAB
     Indication: Colitis ulcerative
     Route: 058
     Dates: start: 20171127

REACTIONS (9)
  - Pyoderma gangrenosum [Recovering/Resolving]
  - Skin disorder [Recovering/Resolving]
  - Acne [Recovering/Resolving]
  - Weight increased [Recovering/Resolving]
  - Inflammation [Recovering/Resolving]
  - Insomnia [Recovering/Resolving]
  - Purulent discharge [Recovering/Resolving]
  - Headache [Recovering/Resolving]
  - Subcutaneous abscess [Recovering/Resolving]

NARRATIVE: CASE EVENT DATE: 20180101
